FAERS Safety Report 14305548 (Version 2)
Quarter: 2018Q1

REPORT INFORMATION
  Report Type: Spontaneous
  Country: DE (occurrence: DE)
  Receive Date: 20171219
  Receipt Date: 20180216
  Transmission Date: 20180509
  Serious: Yes (Other)
  Sender: FDA-Public Use
  Company Number: DE-OTSUKA-16864795

PATIENT
  Age: 62 Year
  Sex: Female

DRUGS (1)
  1. ABILIFY [Suspect]
     Active Substance: ARIPIPRAZOLE
     Indication: MANIA
     Dosage: 10MG/D, INCREA 15MG/DAY,REDUCD.10-13JL12:10MG,14-23JL12:15MG,24JL-6AG:20MG,7-19AG:10MG 7.5MG 20AG12
     Route: 065
     Dates: start: 20120710

REACTIONS (2)
  - Vertigo [Recovered/Resolved]
  - Akathisia [Not Recovered/Not Resolved]

NARRATIVE: CASE EVENT DATE: 20120725
